FAERS Safety Report 5146006-9 (Version None)
Quarter: 2006Q4

REPORT INFORMATION
  Report Type: 
  Country: None (occurrence: None)
  Receive Date: 20061108
  Receipt Date: 20061103
  Transmission Date: 20070319
  Serious: Yes (Death)
  Sender: FDA-Public Use
  Company Number: US-JNJFOC-20061002892

PATIENT
  Age: 94 Year
  Sex: Male
  Weight: 63.5 kg

DRUGS (7)
  1. DITROPAN XL [Suspect]
     Indication: MICTURITION URGENCY
     Route: 048
  2. COREG [Concomitant]
  3. AMBIEN [Concomitant]
  4. ZOFRAN [Concomitant]
  5. LASIX [Concomitant]
  6. DIGOXIN [Concomitant]
  7. LIPITOR [Concomitant]

REACTIONS (2)
  - ACUTE MYOCARDIAL INFARCTION [None]
  - CARDIAC FAILURE [None]
